FAERS Safety Report 6712876-3 (Version None)
Quarter: 2010Q2

REPORT INFORMATION
  Report Type: 
  Country: None (occurrence: None)
  Receive Date: 20100506
  Receipt Date: 20100428
  Transmission Date: 20101027
  Serious: Yes (Other)
  Sender: FDA-Public Use
  Company Number: US-BAYER-201020859NA

PATIENT
  Sex: Female

DRUGS (1)
  1. MIRENA [Suspect]
     Indication: POLYCYSTIC OVARIES
     Route: 048

REACTIONS (3)
  - BIPOLAR DISORDER [None]
  - DYSMENORRHOEA [None]
  - VAGINAL HAEMORRHAGE [None]
